FAERS Safety Report 12974375 (Version 3)
Quarter: 2017Q1

REPORT INFORMATION
  Report Type: Report from Study
  Country: JP (occurrence: JP)
  Receive Date: 20161125
  Receipt Date: 20170124
  Transmission Date: 20170428
  Serious: Yes (Hospitalization, Other)
  Sender: FDA-Public Use
  Company Number: JP-BRISTOL-MYERS SQUIBB COMPANY-BMS-2016-099672

PATIENT
  Age: 88 Year
  Sex: Female
  Weight: 45 kg

DRUGS (15)
  1. APIXABAN [Suspect]
     Active Substance: APIXABAN
     Indication: CEREBROVASCULAR ACCIDENT PROPHYLAXIS
     Dosage: 2.5 MG, BID
     Route: 048
     Dates: start: 20131212, end: 20150317
  2. LASIX [Concomitant]
     Active Substance: FUROSEMIDE
     Indication: OEDEMA
     Dosage: 20 MG, QD
     Route: 048
  3. ARTIST [Concomitant]
     Active Substance: CARVEDILOL
     Indication: PRODUCT USED FOR UNKNOWN INDICATION
     Dosage: 5 MG, QD
     Route: 048
  4. PAROTIN                            /00042901/ [Concomitant]
     Indication: HAND DERMATITIS
     Dosage: 60 MG, QD
     Route: 048
     Dates: end: 20150330
  5. CEREKINON [Concomitant]
     Active Substance: TRIMEBUTINE
     Indication: GASTROINTESTINAL ULCER
     Dosage: UNK MG, QD
     Route: 048
  6. PURSENNID                          /00142207/ [Concomitant]
     Active Substance: SENNOSIDES A AND B
     Indication: CONSTIPATION
     Dosage: 24 MG, QD
     Route: 048
     Dates: end: 20151026
  7. THYRADIN-S [Concomitant]
     Active Substance: LEVOTHYROXINE
     Indication: HYPOTHYROIDISM
     Dosage: 50 ?G, QD
     Route: 048
  8. OLMETEC [Concomitant]
     Active Substance: OLMESARTAN MEDOXOMIL
     Indication: HYPERTENSION
     Dosage: 20 MG, QD
     Route: 048
  9. APIXABAN [Suspect]
     Active Substance: APIXABAN
     Indication: PRODUCT USED FOR UNKNOWN INDICATION
     Dosage: 2.5 MG, BID
     Route: 048
     Dates: start: 20150605
  10. LANIRAPID [Concomitant]
     Active Substance: METILDIGOXIN
     Indication: PRODUCT USED FOR UNKNOWN INDICATION
     Dosage: 0.05 MG, QD
     Route: 048
  11. LANSOPRAZOLE. [Suspect]
     Active Substance: LANSOPRAZOLE
     Indication: GASTROINTESTINAL ULCER
     Dosage: 30 MG, QD
     Route: 048
     Dates: end: 20150323
  12. FOLIAMIN [Concomitant]
     Active Substance: FOLIC ACID
     Indication: VITAMIN B COMPLEX DEFICIENCY
     Dosage: 10 MG, QD
     Route: 048
     Dates: end: 20150507
  13. ULCERLMIN [Concomitant]
     Active Substance: SUCRALFATE
     Indication: GASTROINTESTINAL ULCER
     Dosage: 3 MG, QD
     Route: 048
  14. METHYCOBAL [Concomitant]
     Active Substance: METHYLCOBALAMIN
     Indication: NEUROPATHY PERIPHERAL
     Dosage: 1500 ?G, QD
     Route: 048
     Dates: end: 20150502
  15. STAYBLA [Concomitant]
     Active Substance: IMIDAFENACIN
     Indication: HYPERTONIC BLADDER
     Dosage: 0.5 MG, QD
     Route: 048
     Dates: end: 20150929

REACTIONS (4)
  - Pyrexia [Unknown]
  - Enterocolitis [Recovered/Resolved]
  - Cough [Unknown]
  - Internal haemorrhage [Recovered/Resolved]

NARRATIVE: CASE EVENT DATE: 20150218
